FAERS Safety Report 11013465 (Version 2)
Quarter: 2015Q2

REPORT INFORMATION
  Report Type: Spontaneous
  Country: US (occurrence: US)
  Receive Date: 20150411
  Receipt Date: 20150525
  Transmission Date: 20150821
  Serious: No
  Sender: FDA-Public Use
  Company Number: US-JNJFOC-20121015689

PATIENT
  Age: 45 Year
  Sex: Female
  Weight: 53.07 kg

DRUGS (2)
  1. REMICADE [Suspect]
     Active Substance: INFLIXIMAB
     Indication: COLITIS ULCERATIVE
     Route: 042
     Dates: start: 201203, end: 201209
  2. MESALAMINE. [Concomitant]
     Active Substance: MESALAMINE
     Route: 065

REACTIONS (2)
  - Pruritus [Recovered/Resolved]
  - Colitis ulcerative [Recovered/Resolved]

NARRATIVE: CASE EVENT DATE: 20121010
